FAERS Safety Report 13714305 (Version 7)
Quarter: 2018Q1

REPORT INFORMATION
  Report Type: Report from Study
  Country: CN (occurrence: CN)
  Receive Date: 20170704
  Receipt Date: 20180222
  Transmission Date: 20180508
  Serious: Yes (Hospitalization)
  Sender: FDA-Public Use
  Company Number: CN-ROCHE-1953761

PATIENT
  Age: 58 Year
  Sex: Female
  Weight: 55.5 kg

DRUGS (25)
  1. GLUCOSE [Concomitant]
     Active Substance: DEXTROSE
     Route: 065
     Dates: start: 20170516, end: 20170516
  2. LACIDIPINE FLAT [Concomitant]
     Route: 065
     Dates: start: 2006, end: 20171009
  3. PERTUZUMAB. [Suspect]
     Active Substance: PERTUZUMAB
     Indication: HER-2 POSITIVE BREAST CANCER
     Dosage: LOADING DOSE
     Route: 042
     Dates: start: 20161130, end: 20161130
  4. TRASTUZUMAB. [Suspect]
     Active Substance: TRASTUZUMAB
     Indication: HER-2 POSITIVE BREAST CANCER
     Dosage: LOADING DOSE
     Route: 042
     Dates: start: 20161130, end: 20161130
  5. MEXILETINE [Concomitant]
     Active Substance: MEXILETINE
     Dosage: INDICATION: HEART DAMAGE
     Route: 065
     Dates: start: 20170424, end: 20170607
  6. PHOSPHOCREATINE SODIUM [Concomitant]
     Active Substance: PHOSPHOCREATINE SODIUM
     Dosage: INDICATION: PREVENTION OF HEART DAMAGE
     Route: 065
     Dates: start: 20170424, end: 20170501
  7. TRASTUZUMAB. [Suspect]
     Active Substance: TRASTUZUMAB
     Dosage: LAST DOSE PRIOR TO VENTRICULAR ARRHYTHMIA: 01/MAR/2017?6 MG/KG FOR CYCLES 2-4 (MAINTENANCE DOSE)
     Route: 042
  8. CEFUROXIME SODIUM. [Concomitant]
     Active Substance: CEFUROXIME SODIUM
     Indication: ERYTHEMA
     Dosage: INDICATION: ANTI-INFLAMMATORY
     Route: 065
     Dates: start: 20170321, end: 20170324
  9. LACIDIPINE FLAT [Concomitant]
     Indication: HYPERTENSION
     Route: 065
     Dates: start: 2006, end: 20170405
  10. VANCOMYCIN [Concomitant]
     Active Substance: VANCOMYCIN
     Dosage: INDICATION: ANTI-INFLAMMATORY
     Route: 065
     Dates: start: 20170324, end: 20170405
  11. MEZLOCILLIN SODIUM [Concomitant]
     Active Substance: MEZLOCILLIN SODIUM
     Dosage: INDICATION: ANTI-INFLAMMATORY
     Route: 065
     Dates: start: 20170324, end: 20170412
  12. CEFUROXIME. [Concomitant]
     Active Substance: CEFUROXIME
     Dosage: INDICATION: ANTI-INFECTION
     Route: 065
     Dates: start: 20170516, end: 20170516
  13. PERTUZUMAB. [Suspect]
     Active Substance: PERTUZUMAB
     Dosage: DATE OF MOST RECENT DOSE; 01/MAR/2017?MAINTAINANCE DOSE
     Route: 042
  14. CEFUROXIME SODIUM. [Concomitant]
     Active Substance: CEFUROXIME SODIUM
     Indication: SEPSIS
  15. SHENKANG [Concomitant]
     Active Substance: HERBALS
     Dosage: INDICATION: HEART DAMAGE
     Route: 065
     Dates: start: 20170427, end: 20170428
  16. SHENKANG [Concomitant]
     Active Substance: HERBALS
     Dosage: INDICATION: IMPROVE RENAL FUNCTION FOR EDEMA
     Route: 065
     Dates: start: 20170703
  17. CODEINE [Concomitant]
     Active Substance: CODEINE
     Indication: COUGH
     Route: 065
     Dates: start: 20170424, end: 20170504
  18. CEFTRIAXONE SODIUM. [Concomitant]
     Active Substance: CEFTRIAXONE SODIUM
     Dosage: INDICATION: ANTI-INFECTION
     Route: 065
     Dates: start: 20170517, end: 20170525
  19. DOCETAXEL. [Suspect]
     Active Substance: DOCETAXEL
     Indication: HER-2 POSITIVE BREAST CANCER
     Dosage: LAST DOSE PRIOR TO VENTRICULAR ARRHYTHMIA: 01/MAR/2017 (120 MG)
     Route: 042
     Dates: start: 20161130
  20. COENZYME COMPLEX [Concomitant]
     Active Substance: UNSPECIFIED INGREDIENT
     Dosage: INDICATION: NUTRITIONAL SUPPLEMENT
     Route: 065
     Dates: start: 20170425, end: 20170501
  21. FRUCTOSE [Concomitant]
     Active Substance: FRUCTOSE
     Dosage: INDICATION: REHYDRATION
     Route: 065
     Dates: start: 20170516, end: 20170516
  22. POLYENE PHOSPHATIDYLCHOLINE [Concomitant]
     Active Substance: PHOSPHOLIPID
     Route: 065
     Dates: start: 20170619, end: 20170625
  23. NIFEDIPINE. [Concomitant]
     Active Substance: NIFEDIPINE
     Indication: HYPERTENSION
     Route: 065
     Dates: start: 20170424, end: 20170502
  24. CEFUROXIME SODIUM. [Concomitant]
     Active Substance: CEFUROXIME SODIUM
     Indication: SKIN SWELLING
  25. BISOPROLOL [Concomitant]
     Active Substance: BISOPROLOL
     Dosage: INDICATION: HEART DAMAGE
     Route: 065
     Dates: start: 20170424, end: 20170502

REACTIONS (1)
  - Ventricular arrhythmia [Recovered/Resolved]

NARRATIVE: CASE EVENT DATE: 20170418
